FAERS Safety Report 11385937 (Version 3)
Quarter: 2015Q4

REPORT INFORMATION
  Report Type: Spontaneous
  Country: PL (occurrence: PL)
  Receive Date: 20150817
  Receipt Date: 20151016
  Transmission Date: 20160304
  Serious: Yes (Death, Life-Threatening, Hospitalization, Other)
  Sender: FDA-Public Use
  Company Number: PL-AMGEN-POLSP2015083564

PATIENT

DRUGS (1)
  1. NEULASTA [Suspect]
     Active Substance: PEGFILGRASTIM
     Indication: PRODUCT USED FOR UNKNOWN INDICATION
     Dosage: UNK
     Route: 065

REACTIONS (7)
  - Lymphoma [Fatal]
  - Agranulocytosis [Unknown]
  - Febrile neutropenia [Unknown]
  - Cardiac failure [Fatal]
  - Neutropenia [Unknown]
  - No therapeutic response [Unknown]
  - Circulatory collapse [Fatal]
